FAERS Safety Report 8369211-7 (Version None)
Quarter: 2012Q2

REPORT INFORMATION
  Report Type: 
  Country: None (occurrence: None)
  Receive Date: 20120518
  Receipt Date: 20120508
  Transmission Date: 20120825
  Serious: Yes (Hospitalization)
  Sender: FDA-Public Use
  Company Number: US-MYLANLABS-2012S1009746

PATIENT
  Age: 44 Year
  Sex: Male
  Weight: 101 kg

DRUGS (4)
  1. GLIPIZIDE [Concomitant]
     Indication: TYPE 2 DIABETES MELLITUS
     Route: 048
     Dates: start: 20100201
  2. LOVASTATIN [Concomitant]
     Indication: HYPERCHOLESTEROLAEMIA
     Route: 048
     Dates: start: 20120110
  3. HYDROCHLOROTHIAZIDE [Suspect]
     Indication: HYPERTENSION
     Route: 048
     Dates: start: 20120410
  4. VALSARTAN [Suspect]
     Route: 048
     Dates: start: 20111213

REACTIONS (1)
  - NON-CARDIAC CHEST PAIN [None]
